FAERS Safety Report 11672549 (Version 1)
Quarter: 2015Q4

REPORT INFORMATION
  Report Type: Spontaneous
  Country: US (occurrence: US)
  Receive Date: 20151027
  Receipt Date: 20151027
  Transmission Date: 20160304
  Serious: No
  Sender: FDA-Public Use
  Company Number: US-ELI_LILLY_AND_COMPANY-US201006005430

PATIENT
  Age: 77 Year
  Sex: Female

DRUGS (3)
  1. FORTEO [Suspect]
     Active Substance: TERIPARATIDE
     Dosage: 20 UG, DAILY (1/D)
  2. FORTEO [Suspect]
     Active Substance: TERIPARATIDE
     Indication: OSTEOPOROSIS
     Dosage: 20 UG, DAILY (1/D)
     Route: 058
     Dates: start: 20100521
  3. LORADINE [Concomitant]
     Indication: HYPERSENSITIVITY

REACTIONS (22)
  - Limb injury [Unknown]
  - Skin discolouration [Recovered/Resolved]
  - Blood blister [Unknown]
  - Tongue haemorrhage [Unknown]
  - Asthenia [Not Recovered/Not Resolved]
  - Headache [Recovering/Resolving]
  - Skeletal injury [Unknown]
  - Pain in extremity [Unknown]
  - Arthralgia [Unknown]
  - Pruritus [Unknown]
  - Limb injury [Unknown]
  - Myalgia [Unknown]
  - Pain [Unknown]
  - Fall [Unknown]
  - Injection site erythema [Unknown]
  - Bone pain [Unknown]
  - Toothache [Unknown]
  - Tooth disorder [Unknown]
  - Asthenia [Recovered/Resolved]
  - Ligament sprain [Recovering/Resolving]
  - Contusion [Unknown]
  - Accident at home [Unknown]

NARRATIVE: CASE EVENT DATE: 20100606
